FAERS Safety Report 10791597 (Version 2)
Quarter: 2019Q3

REPORT INFORMATION
  Report Type: Spontaneous
  Country: GB (occurrence: GB)
  Receive Date: 20150213
  Receipt Date: 20190711
  Transmission Date: 20191004
  Serious: Yes (Life-Threatening, Hospitalization, Other)
  Sender: FDA-Public Use
  Company Number: GB-ACCORD-028544

PATIENT
  Age: 32 Year
  Sex: Male

DRUGS (3)
  1. HERBESSER [Suspect]
     Active Substance: DILTIAZEM HYDROCHLORIDE
     Dosage: MODIFIED RELEASE DILTIAZEM
  2. SIMVASTATIN. [Suspect]
     Active Substance: SIMVASTATIN
     Route: 048
  3. BISOPROLOL [Suspect]
     Active Substance: BISOPROLOL
     Route: 048

REACTIONS (14)
  - Blood creatine phosphokinase increased [Recovering/Resolving]
  - Rhabdomyolysis [Recovering/Resolving]
  - Hypothermia [Unknown]
  - Intentional overdose [Unknown]
  - Oliguria [Recovering/Resolving]
  - Blood glucose increased [Recovering/Resolving]
  - Vasodilatation [Recovering/Resolving]
  - Coma [Recovered/Resolved]
  - Respiratory acidosis [Recovering/Resolving]
  - Atrioventricular block complete [Recovering/Resolving]
  - Hypoxia [Recovering/Resolving]
  - Hypokalaemia [Recovering/Resolving]
  - Blood creatinine increased [Recovering/Resolving]
  - Myopathy [Recovering/Resolving]
